FAERS Safety Report 24055363 (Version 3)
Quarter: 2024Q4

REPORT INFORMATION
  Report Type: Spontaneous
  Country: JP (occurrence: JP)
  Receive Date: 20240705
  Receipt Date: 20241114
  Transmission Date: 20250115
  Serious: No
  Sender: PFIZER
  Company Number: JP-PFIZER INC-PV202400085501

PATIENT
  Sex: Female

DRUGS (1)
  1. ENBREL [Suspect]
     Active Substance: ETANERCEPT
     Dosage: 25 MG AT ONE TIME
     Route: 058

REACTIONS (6)
  - Wrong technique in device usage process [Unknown]
  - Product administered at inappropriate site [Unknown]
  - Injury associated with device [Unknown]
  - Injection site pain [Unknown]
  - Limb injury [Unknown]
  - Injection site swelling [Unknown]

NARRATIVE: CASE EVENT DATE: 20240628
